FAERS Safety Report 5818820-5 (Version None)
Quarter: 2008Q3

REPORT INFORMATION
  Report Type: 
  Country: None (occurrence: None)
  Receive Date: 20080723
  Receipt Date: 20080711
  Transmission Date: 20090109
  Serious: Yes (Death)
  Sender: FDA-Public Use
  Company Number: GB-JNJFOC-20080504073

PATIENT
  Sex: Male

DRUGS (7)
  1. DURAGESIC-100 [Suspect]
     Indication: INTENTIONAL DRUG MISUSE
     Route: 062
  2. TRAMADOL HCL [Suspect]
     Indication: PAIN
     Route: 065
  3. DIAZEPAM [Suspect]
     Indication: ANXIETY
     Route: 065
  4. CHLORPROMAZINE [Concomitant]
     Indication: DRUG USE FOR UNKNOWN INDICATION
     Route: 065
  5. METHYLENEDIOXYMETHAMPHETAMINE [Concomitant]
  6. CANNABIS [Concomitant]
  7. ALCOHOL [Concomitant]

REACTIONS (4)
  - DRUG ABUSE [None]
  - PNEUMONIA [None]
  - RESPIRATORY DEPRESSION [None]
  - SELF INJURIOUS BEHAVIOUR [None]
